FAERS Safety Report 8575170-4 (Version None)
Quarter: 2012Q3

REPORT INFORMATION
  Report Type: 
  Country: None (occurrence: None)
  Receive Date: 20120807
  Receipt Date: 20120712
  Transmission Date: 20120928
  Serious: No
  Sender: FDA-Public Use
  Company Number: US-009507513-1207USA005547

PATIENT

DRUGS (3)
  1. PEGASYS [Suspect]
     Indication: HEPATITIS C
     Dosage: 180 MICROGRAM, QM
     Route: 058
     Dates: start: 20120523
  2. VICTRELIS [Suspect]
     Dosage: 200 MG, UNK
  3. REBETOL [Suspect]
     Dosage: 200 MG, UNK

REACTIONS (9)
  - VOMITING [None]
  - MUSCLE TWITCHING [None]
  - ALOPECIA [None]
  - DYSGEUSIA [None]
  - ARTHRALGIA [None]
  - RASH [None]
  - FATIGUE [None]
  - CHROMATURIA [None]
  - WEIGHT DECREASED [None]
